FAERS Safety Report 4293759-8 (Version None)
Quarter: 2004Q1

REPORT INFORMATION
  Report Type: 
  Country: None (occurrence: None)
  Receive Date: 20040212
  Receipt Date: 20030602
  Transmission Date: 20041129
  Serious: Yes (Hospitalization, Other)
  Sender: FDA-Public Use
  Company Number: WAES 0306USA00271

PATIENT
  Age: 66 Year
  Sex: Female

DRUGS (9)
  1. TYLENOL (CAPLET) [Concomitant]
  2. TENORMIN [Concomitant]
  3. DURICEF [Concomitant]
  4. PERSANTIN INJ [Concomitant]
  5. MEVACOR [Suspect]
     Indication: BLOOD CHOLESTEROL INCREASED
     Route: 048
     Dates: start: 19910101, end: 19920401
  6. MEVACOR [Suspect]
     Route: 048
     Dates: start: 19920401, end: 19950101
  7. PROCARDIA XL [Concomitant]
  8. COUMADIN [Concomitant]
  9. COUMADIN [Concomitant]

REACTIONS (73)
  - ABDOMINAL DISTENSION [None]
  - ABDOMINAL PAIN [None]
  - ADVERSE EVENT [None]
  - ANGINA UNSTABLE [None]
  - ANKLE FRACTURE [None]
  - ANTI-THYROID ANTIBODY POSITIVE [None]
  - ANTINUCLEAR ANTIBODY POSITIVE [None]
  - ASTHENIA [None]
  - ATHEROSCLEROSIS [None]
  - ATRIAL FIBRILLATION [None]
  - ATRIAL FLUTTER [None]
  - ATRIAL TACHYCARDIA [None]
  - BACK PAIN [None]
  - BALANCE DISORDER [None]
  - BLOOD POTASSIUM INCREASED [None]
  - BLOOD PRESSURE INCREASED [None]
  - BLOOD THYROID STIMULATING HORMONE DECREASED [None]
  - BLOOD TRIGLYCERIDES INCREASED [None]
  - BURNING SENSATION [None]
  - CARDIAC FAILURE CONGESTIVE [None]
  - CATARACT [None]
  - CERVICITIS [None]
  - CORONARY ARTERY DISEASE [None]
  - CYSTOCELE [None]
  - DEEP VEIN THROMBOSIS [None]
  - DERMATOMYOSITIS [None]
  - DIARRHOEA [None]
  - DILATATION ATRIAL [None]
  - DIZZINESS [None]
  - DYSPHAGIA [None]
  - DYSPNOEA [None]
  - EAR PAIN [None]
  - ERYTHEMA [None]
  - EXOSTOSIS [None]
  - EYE PAIN [None]
  - FALL [None]
  - FOOT FRACTURE [None]
  - GOITRE [None]
  - HEADACHE [None]
  - HEART RATE INCREASED [None]
  - HYPERHIDROSIS [None]
  - HYPERTENSION [None]
  - HYPOACUSIS [None]
  - INSOMNIA [None]
  - MITRAL VALVE STENOSIS [None]
  - MUSCULAR WEAKNESS [None]
  - MUSCULOSKELETAL DISCOMFORT [None]
  - MYOCARDIAL ISCHAEMIA [None]
  - MYOPATHY [None]
  - NAUSEA [None]
  - NECK PAIN [None]
  - NERVE INJURY [None]
  - NEUROPATHY [None]
  - OEDEMA [None]
  - PAIN IN EXTREMITY [None]
  - PERIPHERAL VASCULAR DISORDER [None]
  - PLANTAR FASCIITIS [None]
  - POLLAKIURIA [None]
  - PRURITUS [None]
  - PULMONARY OEDEMA [None]
  - RASH [None]
  - RED BLOOD CELL SEDIMENTATION RATE INCREASED [None]
  - SINUS PAIN [None]
  - SNEEZING [None]
  - SUPRAVENTRICULAR TACHYCARDIA [None]
  - SYNCOPE VASOVAGAL [None]
  - TACHYARRHYTHMIA [None]
  - THYROID NEOPLASM [None]
  - TINNITUS [None]
  - UTERINE PROLAPSE [None]
  - VAGINITIS [None]
  - VERTIGO [None]
  - VOMITING [None]
